FAERS Safety Report 4757993-2 (Version None)
Quarter: 2005Q3

REPORT INFORMATION
  Report Type: 
  Country: None (occurrence: None)
  Receive Date: 20050829
  Receipt Date: 20050810
  Transmission Date: 20060218
  Serious: Yes (Other)
  Sender: FDA-Public Use
  Company Number: 2004-00333

PATIENT
  Age: 61 Year
  Sex: Male

DRUGS (9)
  1. INTEGRILIN [Suspect]
     Indication: CORONARY ANGIOPLASTY
  2. HEPARIN [Concomitant]
  3. PLAVIX [Concomitant]
  4. GLYCERYL TRINITRATE (GLYCERYL TRINITRATE) [Concomitant]
  5. INSULIN (INSULIN) [Concomitant]
  6. EXETIMIBE (EZETIMIBE) [Concomitant]
  7. CRESTOR [Concomitant]
  8. LOPRESSOR [Concomitant]
  9. ECOTRIN (ACETYLSALICYLIC ACID) [Concomitant]

REACTIONS (5)
  - ANAPHYLACTIC REACTION [None]
  - HYPOTENSION [None]
  - THROMBOCYTOPENIA [None]
  - TREMOR [None]
  - WOUND HAEMORRHAGE [None]
